FAERS Safety Report 15227838 (Version 1)
Quarter: 2018Q3

REPORT INFORMATION
  Report Type: Spontaneous
  Country: CA (occurrence: CA)
  Receive Date: 20180801
  Receipt Date: 20180801
  Transmission Date: 20181010
  Serious: Yes (Death)
  Sender: FDA-Public Use
  Company Number: CA-ASTRAZENECA-2018SE95418

PATIENT
  Age: 62 Year
  Sex: Female

DRUGS (6)
  1. TAMOXIFEN [Concomitant]
     Active Substance: TAMOXIFEN
  2. OMEPRAZOLE. [Concomitant]
     Active Substance: OMEPRAZOLE
     Route: 048
  3. IBRANCE [Concomitant]
     Active Substance: PALBOCICLIB
     Route: 048
     Dates: start: 201706
  4. FULVESTRANT. [Suspect]
     Active Substance: FULVESTRANT
     Route: 030
     Dates: start: 201606
  5. CIPROFLOXACIN/DEXAMETHASONE [Concomitant]
     Active Substance: CIPROFLOXACIN\DEXAMETHASONE
  6. HYDROMORPH CONTIN [Concomitant]
     Active Substance: HYDROMORPHONE

REACTIONS (4)
  - Hypercalcaemia [Fatal]
  - Pleural effusion [Unknown]
  - Fluid overload [Unknown]
  - Malignant neoplasm progression [Fatal]
